FAERS Safety Report 12596846 (Version 1)
Quarter: 2016Q3

REPORT INFORMATION
  Report Type: Spontaneous
  Country: US (occurrence: None)
  Receive Date: 20160726
  Receipt Date: 20160726
  Transmission Date: 20161109
  Serious: Yes (Other)
  Sender: FDA-Public Use
  Company Number: None

PATIENT
  Age: 60 Year
  Sex: Female
  Weight: 66.23 kg

DRUGS (5)
  1. VITAMIN B12 [Concomitant]
     Active Substance: CYANOCOBALAMIN
  2. VITAMIN D [Concomitant]
     Active Substance: CHOLECALCIFEROL
  3. FLUOXETINE [Suspect]
     Active Substance: FLUOXETINE HYDROCHLORIDE
     Indication: PANIC ATTACK
     Dosage: 30 CAPSULE(S) IN THE MORNING TAKEN BY MOUTH
     Route: 048
  4. MULTI-VITAMIN [Concomitant]
     Active Substance: .ALPHA.-TOCOPHEROL ACETATE, DL-\ASCORBIC ACID\CYANOCOBALAMIN\FLUORIDE ION\FOLIC ACID\NIACIN\PYRIDOXINE\RIBOFLAVIN\THIAMINE\VITAMIN A\VITAMIN D
  5. LEVOXTHYROINE [Concomitant]

REACTIONS (9)
  - Anxiety [None]
  - Insomnia [None]
  - Feeling of despair [None]
  - Diarrhoea [None]
  - Feeling abnormal [None]
  - Product expiration date issue [None]
  - Drug ineffective [None]
  - Muscular weakness [None]
  - Tremor [None]

NARRATIVE: CASE EVENT DATE: 20160621
